FAERS Safety Report 9231986 (Version 1)
Quarter: 2013Q2

REPORT INFORMATION
  Report Type: Spontaneous
  Country: CH (occurrence: CH)
  Receive Date: 20130415
  Receipt Date: 20130415
  Transmission Date: 20140414
  Serious: Yes (Other)
  Sender: FDA-Public Use
  Company Number: CHPA2013CH006418

PATIENT
  Age: 13 Year
  Sex: Female
  Weight: 37 kg

DRUGS (4)
  1. TAVEGYL [Suspect]
     Indication: ANTIEMETIC SUPPORTIVE CARE
     Dosage: 0.05 MG/KG, ONCE/SINGLE
     Route: 042
     Dates: start: 20130201, end: 20130201
  2. LEUCOVORIN [Concomitant]
     Dosage: UNK, UNK
     Route: 042
  3. OXALIPLATIN [Concomitant]
     Dosage: UNK, UNK
     Route: 042
  4. PREDNISOLONE [Concomitant]
     Dosage: UNK, UNK
     Route: 042

REACTIONS (4)
  - Hyperhidrosis [Recovered/Resolved]
  - Abdominal pain [Recovered/Resolved]
  - Defaecation urgency [Recovered/Resolved]
  - Rash [Recovered/Resolved]
